APPROVED DRUG PRODUCT: DANZITEN
Active Ingredient: NILOTINIB TARTRATE
Strength: EQ 95MG BASE
Dosage Form/Route: TABLET;ORAL
Application: N219293 | Product #002
Applicant: AZURITY PHARMACEUTICALS INC
Approved: Nov 7, 2024 | RLD: Yes | RS: Yes | Type: RX

PATENTS:
Patent 12403140 | Expires: Feb 18, 2040
Patent 11793809 | Expires: Feb 18, 2040
Patent 10874671 | Expires: Feb 18, 2040